FAERS Safety Report 25352192 (Version 1)
Quarter: 2025Q2

REPORT INFORMATION
  Report Type: Spontaneous
  Country: GB (occurrence: GB)
  Receive Date: 20250523
  Receipt Date: 20250523
  Transmission Date: 20250717
  Serious: Yes (Other)
  Sender: B BRAUN
  Company Number: GB-B.Braun Medical Inc.-2177361

PATIENT
  Sex: Male

DRUGS (27)
  1. ACETAMINOPHEN [Suspect]
     Active Substance: ACETAMINOPHEN
  2. ALENDRONIC ACID [Concomitant]
     Active Substance: ALENDRONIC ACID
  3. ZOPICLONE [Concomitant]
     Active Substance: ZOPICLONE
  4. BUDESONIDE\FORMOTEROL\GLYCOPYRRONIUM [Concomitant]
     Active Substance: BUDESONIDE\FORMOTEROL\GLYCOPYRRONIUM
  5. TAMSULOSIN HYDROCHLORIDE [Concomitant]
     Active Substance: TAMSULOSIN HYDROCHLORIDE
  6. SERTRALINE [Concomitant]
     Active Substance: SERTRALINE HYDROCHLORIDE
  7. POTASSIUM CHLORIDE [Concomitant]
     Active Substance: POTASSIUM CHLORIDE
  8. ALBUTEROL SULFATE [Concomitant]
     Active Substance: ALBUTEROL SULFATE
  9. PYRIDOSTIGMINE [Concomitant]
     Active Substance: PYRIDOSTIGMINE
  10. PREGABALIN [Concomitant]
     Active Substance: PREGABALIN
  11. MIRABEGRON [Concomitant]
     Active Substance: MIRABEGRON
  12. METHOTREXATE [Concomitant]
     Active Substance: METHOTREXATE
  13. LOPERAMIDE [Concomitant]
     Active Substance: LOPERAMIDE
  14. LEVETIRACETAM [Concomitant]
     Active Substance: LEVETIRACETAM
  15. LANSOPRAZOLE [Concomitant]
     Active Substance: LANSOPRAZOLE
  16. GABAPENTIN [Concomitant]
     Active Substance: GABAPENTIN
  17. FUROSEMIDE [Concomitant]
     Active Substance: FUROSEMIDE
  18. FOLIC ACID [Concomitant]
     Active Substance: FOLIC ACID
  19. MINERAL OIL\PARAFFIN [Concomitant]
     Active Substance: MINERAL OIL\PARAFFIN
  20. DARBEPOETIN ALFA [Concomitant]
     Active Substance: DARBEPOETIN ALFA
  21. CYCLIZINE [Concomitant]
     Active Substance: CYCLIZINE
  22. 3M CAVILON ANTIFUNGAL [Concomitant]
     Active Substance: MICONAZOLE NITRATE
  23. CARBOCYSTEINE [Concomitant]
     Active Substance: CARBOCYSTEINE
  24. CALCIUM CARBONATE [Concomitant]
     Active Substance: CALCIUM CARBONATE
  25. BUPRENORPHINE [Concomitant]
     Active Substance: BUPRENORPHINE
  26. AMOXICILLIN [Concomitant]
     Active Substance: AMOXICILLIN
  27. AMLODIPINE [Concomitant]
     Active Substance: AMLODIPINE BESYLATE

REACTIONS (2)
  - Drug hypersensitivity [Unknown]
  - Malaise [Unknown]
